FAERS Safety Report 8063253-7 (Version None)
Quarter: 2012Q1

REPORT INFORMATION
  Report Type: 
  Country: None (occurrence: None)
  Receive Date: 20120123
  Receipt Date: 20120118
  Transmission Date: 20120608
  Serious: Yes (Hospitalization)
  Sender: FDA-Public Use
  Company Number: PHHO2010DE12603

PATIENT
  Sex: Male
  Weight: 80 kg

DRUGS (11)
  1. FLUVASTATIN SODIUM [Concomitant]
     Indication: DIARRHOEA
     Dosage: UNK
     Dates: end: 20120116
  2. CANDESARTAN CILEXETIL [Concomitant]
  3. BLINDED NO TREATMENT RECEIVED [Suspect]
     Indication: TUBEROUS SCLEROSIS
     Dosage: CODE NOT BROKEN
     Route: 048
     Dates: start: 20090810, end: 20100817
  4. BLINDED PLACEBO [Suspect]
     Indication: TUBEROUS SCLEROSIS
     Dosage: CODE NOT BROKEN
     Route: 048
     Dates: start: 20090810, end: 20100817
  5. AFINITOR [Suspect]
     Dosage: CODE NOT BROKEN
     Route: 048
     Dates: start: 20100910
  6. BLINDED NO TREATMENT RECEIVED [Suspect]
     Dosage: CODE NOT BROKEN
     Route: 048
     Dates: start: 20100910
  7. CALCIUM [Concomitant]
  8. ERGOCALCIFEROL [Concomitant]
  9. ALFUZOSIN HYDROCHLORIDE [Concomitant]
  10. AFINITOR [Suspect]
     Indication: TUBEROUS SCLEROSIS
     Dosage: CODE NOT BROKEN
     Route: 048
     Dates: start: 20090810, end: 20100817
  11. BLINDED PLACEBO [Suspect]
     Dosage: CODE NOT BROKEN
     Route: 048
     Dates: start: 20100910

REACTIONS (9)
  - GASTROINTESTINAL INFECTION [None]
  - PNEUMONIA LEGIONELLA [None]
  - LUNG INFILTRATION [None]
  - PYREXIA [None]
  - DIARRHOEA [None]
  - RENAL FAILURE ACUTE [None]
  - CARDIOVASCULAR INSUFFICIENCY [None]
  - HYPOVOLAEMIA [None]
  - FALL [None]
